FAERS Safety Report 17745048 (Version 1)
Quarter: 2020Q2

REPORT INFORMATION
  Report Type: Spontaneous
  Country: CO (occurrence: CO)
  Receive Date: 20200504
  Receipt Date: 20200504
  Transmission Date: 20200714
  Serious: Yes (Other)
  Sender: FDA-Public Use
  Company Number: CO-BIOMARINAP-CO-2020-129696

PATIENT
  Age: 28 Year
  Sex: Female
  Weight: 44 kg

DRUGS (1)
  1. VIMIZIM [Suspect]
     Active Substance: ELOSULFASE ALFA
     Indication: MUCOPOLYSACCHARIDOSIS IV
     Dosage: 2 MILLIGRAM/KILOGRAM, QW
     Route: 042
     Dates: start: 20020316

REACTIONS (7)
  - Fatigue [Unknown]
  - Mobility decreased [Recovered/Resolved with Sequelae]
  - Dyspnoea [Unknown]
  - Snoring [Unknown]
  - Deafness [Recovered/Resolved]
  - Choking [Unknown]
  - Sleep apnoea syndrome [Recovering/Resolving]
